FAERS Safety Report 5068592-X (Version None)
Quarter: 2006Q3

REPORT INFORMATION
  Report Type: 
  Country: None (occurrence: None)
  Receive Date: 20060802
  Receipt Date: 20051216
  Transmission Date: 20061208
  Serious: No
  Sender: FDA-Public Use
  Company Number: US-BRISTOL-MYERS SQUIBB COMPANY-13219589

PATIENT
  Age: 69 Year
  Sex: Male
  Weight: 99 kg

DRUGS (5)
  1. COUMADIN [Suspect]
     Indication: CARDIAC DISORDER
     Dosage: INITIATED AT 5 MG DAILY, INCREASED TO 10 MG DAILY SEP-2005
     Dates: start: 20050801
  2. TOPROL-XL [Concomitant]
  3. METFORMIN HYDROCHLORIDE [Concomitant]
  4. ASCORBIC ACID [Concomitant]
  5. NAPROSYN [Concomitant]

REACTIONS (1)
  - INTERNATIONAL NORMALISED RATIO INCREASED [None]
